FAERS Safety Report 4980040-4 (Version None)
Quarter: 2006Q2

REPORT INFORMATION
  Report Type: 
  Country: None (occurrence: None)
  Receive Date: 20060421
  Receipt Date: 20041231
  Transmission Date: 20061013
  Serious: Yes (Other)
  Sender: FDA-Public Use
  Company Number: US-MERCK-0501USA00199

PATIENT
  Age: 48 Year
  Sex: Male
  Weight: 109 kg

DRUGS (2)
  1. VIOXX [Suspect]
     Route: 048
     Dates: start: 20040401, end: 20041001
  2. ALEVE [Concomitant]
     Route: 065

REACTIONS (1)
  - RETINAL ARTERY OCCLUSION [None]
